FAERS Safety Report 9143329 (Version 1)
Quarter: 2013Q1

REPORT INFORMATION
  Report Type: Spontaneous
  Country: US (occurrence: US)
  Receive Date: 20130306
  Receipt Date: 20130306
  Transmission Date: 20140127
  Serious: No
  Sender: FDA-Public Use
  Company Number: US-ENDO PHARMACEUTICALS INC.-OPER20120391

PATIENT
  Sex: Male

DRUGS (3)
  1. OPANA ER [Suspect]
     Indication: PAIN
     Route: 048
  2. OPANA ER [Suspect]
     Indication: BREAKTHROUGH PAIN
     Route: 048
  3. DEMEROL [Concomitant]
     Indication: PAIN
     Dosage: 100 MG

REACTIONS (2)
  - Malaise [Not Recovered/Not Resolved]
  - Blood pressure increased [Unknown]
